FAERS Safety Report 4643359-2 (Version None)
Quarter: 2005Q2

REPORT INFORMATION
  Report Type: 
  Country: None (occurrence: None)
  Receive Date: 20050422
  Receipt Date: 20050406
  Transmission Date: 20051028
  Serious: Yes (Hospitalization)
  Sender: FDA-Public Use
  Company Number: 2005UW05370

PATIENT
  Age: 70 Year
  Sex: Female

DRUGS (1)
  1. CRESTOR [Suspect]
     Dosage: 20 MG PO
     Route: 048
     Dates: end: 20050305

REACTIONS (6)
  - ANOREXIA [None]
  - DEHYDRATION [None]
  - FALL [None]
  - NASOPHARYNGITIS [None]
  - RENAL FAILURE [None]
  - RHABDOMYOLYSIS [None]
